FAERS Safety Report 20364441 (Version 3)
Quarter: 2022Q1

REPORT INFORMATION
  Report Type: Spontaneous
  Country: CN (occurrence: CN)
  Receive Date: 20220121
  Receipt Date: 20220314
  Transmission Date: 20220423
  Serious: Yes (Hospitalization)
  Sender: FDA-Public Use
  Company Number: CN-CELGENE-CHN-20220104409

PATIENT
  Age: 86 Year
  Sex: Male
  Weight: 74 kg

DRUGS (20)
  1. AZACITIDINE [Suspect]
     Active Substance: AZACITIDINE
     Indication: Acute myeloid leukaemia
     Dosage: 144 MILLIGRAM
     Route: 058
     Dates: start: 20210108, end: 20210113
  2. AZACITIDINE [Suspect]
     Active Substance: AZACITIDINE
     Dosage: 140 MILLIGRAM
     Route: 058
     Dates: start: 20210202, end: 20210208
  3. AZACITIDINE [Suspect]
     Active Substance: AZACITIDINE
     Dosage: 141 MILLIGRAM
     Route: 058
     Dates: start: 20210312, end: 20210312
  4. AZACITIDINE [Suspect]
     Active Substance: AZACITIDINE
     Dosage: 94 MILLIGRAM
     Route: 058
     Dates: start: 20210413, end: 20210418
  5. AZACITIDINE [Suspect]
     Active Substance: AZACITIDINE
     Dosage: 94.6 MILLIGRAM
     Route: 058
     Dates: start: 20210610, end: 20210616
  6. AZACITIDINE [Suspect]
     Active Substance: AZACITIDINE
     Dosage: 96 MILLIGRAM
     Route: 058
     Dates: start: 20210707, end: 20210713
  7. AZACITIDINE [Suspect]
     Active Substance: AZACITIDINE
     Dosage: 94 MILLIGRAM
     Route: 058
     Dates: start: 20210818, end: 20210824
  8. AZACITIDINE [Suspect]
     Active Substance: AZACITIDINE
     Dosage: 96 MILLIGRAM
     Route: 058
     Dates: start: 20210915, end: 20210921
  9. AZACITIDINE [Suspect]
     Active Substance: AZACITIDINE
     Route: 058
     Dates: end: 20220112
  10. AZACITIDINE [Suspect]
     Active Substance: AZACITIDINE
     Dosage: 96 MILLIGRAM
     Route: 058
     Dates: start: 20220209
  11. IVOSIDENIB [Suspect]
     Active Substance: IVOSIDENIB
     Indication: Acute myeloid leukaemia
     Dosage: 500 MILLIGRAM
     Route: 048
     Dates: start: 20210108, end: 20210217
  12. IVOSIDENIB [Suspect]
     Active Substance: IVOSIDENIB
     Dosage: 250 MILLIGRAM
     Route: 048
     Dates: start: 20210227, end: 20210818
  13. IVOSIDENIB [Suspect]
     Active Substance: IVOSIDENIB
     Dosage: 500 MILLIGRAM
     Route: 048
     Dates: start: 20210819, end: 20210819
  14. IVOSIDENIB [Suspect]
     Active Substance: IVOSIDENIB
     Dosage: 250 MILLIGRAM
     Route: 048
     Dates: start: 20210820, end: 20210824
  15. IVOSIDENIB [Suspect]
     Active Substance: IVOSIDENIB
     Dosage: 250 MILLIGRAM
     Route: 048
     Dates: start: 20210820, end: 20210824
  16. IVOSIDENIB [Suspect]
     Active Substance: IVOSIDENIB
     Dosage: 250 MILLIGRAM
     Route: 048
     Dates: start: 20210825
  17. POTASSIUM CHLORIDE [Concomitant]
     Active Substance: POTASSIUM CHLORIDE
     Indication: Hypokalaemia
     Route: 048
     Dates: start: 20210112
  18. SODIUM CHLORIDE [Concomitant]
     Active Substance: SODIUM CHLORIDE
     Indication: Nutritional supplementation
     Dosage: 40 MILLILITER
     Route: 041
     Dates: start: 20210204
  19. INSULIN PORK\INSULIN PURIFIED PORK [Concomitant]
     Active Substance: INSULIN PORK\INSULIN PURIFIED PORK
     Indication: Diabetes mellitus
     Route: 041
     Dates: start: 20210204
  20. METOCLOPRAMIDE HYDROCHLORIDE [Concomitant]
     Active Substance: METOCLOPRAMIDE HYDROCHLORIDE
     Indication: Vomiting
     Route: 048
     Dates: start: 20211219, end: 20211223

REACTIONS (1)
  - Head injury [Recovered/Resolved]

NARRATIVE: CASE EVENT DATE: 20220113
